FAERS Safety Report 9871829 (Version 2)
Quarter: 2014Q1

REPORT INFORMATION
  Report Type: Spontaneous
  Country: US (occurrence: US)
  Receive Date: 20140205
  Receipt Date: 20140205
  Transmission Date: 20141002
  Serious: No
  Sender: FDA-Public Use
  Company Number: -SAAVPROD-THYM-1003670

PATIENT
  Age: 65 Year
  Sex: 0

DRUGS (1)
  1. ANTI-THYMOCYTE GLOBULIN (RABBIT) [Suspect]
     Indication: PRODUCT USED FOR UNKNOWN INDICATION
     Dosage: 125 MG, UNK (2 INFUSIONS)
     Route: 065
     Dates: start: 20130218

REACTIONS (1)
  - Adverse event [Unknown]
